FAERS Safety Report 5674500-0 (Version None)
Quarter: 2008Q1

REPORT INFORMATION
  Report Type: 
  Country: None (occurrence: None)
  Receive Date: 20080317
  Receipt Date: 20080229
  Transmission Date: 20080703
  Serious: Yes (Life-Threatening, Hospitalization)
  Sender: FDA-Public Use
  Company Number: 2008JP000740

PATIENT
  Sex: Male
  Weight: 65 kg

DRUGS (11)
  1. TACROLIMUS [Suspect]
     Indication: RHEUMATOID ARTHRITIS
     Dosage: 2 MG, UID/QD, ORAL, 3 MG, UID/QD, ORAL, 2.5 MG, UID/QD, ORAL, 1.5 MG, UID/QD, ORAL, 1 MG, UID/QD, OR
     Route: 048
     Dates: start: 20050721, end: 20050804
  2. TACROLIMUS [Suspect]
     Indication: RHEUMATOID ARTHRITIS
     Dosage: 2 MG, UID/QD, ORAL, 3 MG, UID/QD, ORAL, 2.5 MG, UID/QD, ORAL, 1.5 MG, UID/QD, ORAL, 1 MG, UID/QD, OR
     Route: 048
     Dates: start: 20050805, end: 20051221
  3. TACROLIMUS [Suspect]
     Indication: RHEUMATOID ARTHRITIS
     Dosage: 2 MG, UID/QD, ORAL, 3 MG, UID/QD, ORAL, 2.5 MG, UID/QD, ORAL, 1.5 MG, UID/QD, ORAL, 1 MG, UID/QD, OR
     Route: 048
     Dates: start: 20051222, end: 20060125
  4. TACROLIMUS [Suspect]
     Indication: RHEUMATOID ARTHRITIS
     Dosage: 2 MG, UID/QD, ORAL, 3 MG, UID/QD, ORAL, 2.5 MG, UID/QD, ORAL, 1.5 MG, UID/QD, ORAL, 1 MG, UID/QD, OR
     Route: 048
     Dates: start: 20060126, end: 20060213
  5. TACROLIMUS [Suspect]
     Indication: RHEUMATOID ARTHRITIS
     Dosage: 2 MG, UID/QD, ORAL, 3 MG, UID/QD, ORAL, 2.5 MG, UID/QD, ORAL, 1.5 MG, UID/QD, ORAL, 1 MG, UID/QD, OR
     Route: 048
     Dates: start: 20060214, end: 20060312
  6. TACROLIMUS [Suspect]
     Indication: RHEUMATOID ARTHRITIS
     Dosage: 2 MG, UID/QD, ORAL, 3 MG, UID/QD, ORAL, 2.5 MG, UID/QD, ORAL, 1.5 MG, UID/QD, ORAL, 1 MG, UID/QD, OR
     Route: 048
     Dates: start: 20060313, end: 20060405
  7. PREDNISOLONE [Suspect]
     Indication: RHEUMATOID ARTHRITIS
     Dosage: 13 MG, UID/QD, ORAL
     Route: 048
     Dates: start: 20041004
  8. BAKTAR (SULFAMETHOXAZOLE, TRIMETHOPRIM) TABLET [Concomitant]
  9. ALFAROL (ALFACALCIDOL) CAPSULE [Concomitant]
  10. TAKEPRON (LANSOPRAZOLE) TABLET [Concomitant]
  11. ASPARA-CA (ASPARTATE CALCIUM) TABLET [Concomitant]

REACTIONS (7)
  - ARTHRALGIA [None]
  - CHRONIC RESPIRATORY FAILURE [None]
  - DIARRHOEA [None]
  - IMMUNOSUPPRESSION [None]
  - INTERSTITIAL LUNG DISEASE [None]
  - LUNG NEOPLASM MALIGNANT [None]
  - PULMONARY TUBERCULOSIS [None]
